FAERS Safety Report 7272589-9 (Version None)
Quarter: 2011Q1

REPORT INFORMATION
  Report Type: 
  Country: None (occurrence: None)
  Receive Date: 20110131
  Receipt Date: 20110131
  Transmission Date: 20110831
  Serious: Yes (Other)
  Sender: FDA-Public Use
  Company Number: None

PATIENT
  Sex: Female
  Weight: 54.4316 kg

DRUGS (1)
  1. ROPIVACAINE 0.5% [Suspect]
     Indication: POSTOPERATIVE CARE
     Dates: start: 20101207, end: 20101207

REACTIONS (6)
  - OEDEMA PERIPHERAL [None]
  - SENSORY DISTURBANCE [None]
  - THERMAL BURN [None]
  - SKIN EXFOLIATION [None]
  - SKIN DISCOLOURATION [None]
  - SKIN BURNING SENSATION [None]
